FAERS Safety Report 8617639-X (Version None)
Quarter: 2012Q3

REPORT INFORMATION
  Report Type: 
  Country: None (occurrence: None)
  Receive Date: 20120824
  Receipt Date: 20120127
  Transmission Date: 20120928
  Serious: No
  Sender: FDA-Public Use
  Company Number: US-ASTRAZENECA-2011SE75269

PATIENT
  Age: 11 Year
  Sex: Male
  Weight: 40.6 kg

DRUGS (1)
  1. SYMBICORT [Suspect]
     Route: 055

REACTIONS (2)
  - ASTHMA [None]
  - DRUG DOSE OMISSION [None]
